FAERS Safety Report 6743603-1 (Version None)
Quarter: 2010Q2

REPORT INFORMATION
  Report Type: 
  Country: None (occurrence: None)
  Receive Date: 20100527
  Receipt Date: 20100519
  Transmission Date: 20101027
  Serious: Yes (Other)
  Sender: FDA-Public Use
  Company Number: CH-ROCHE-704153

PATIENT
  Sex: Female

DRUGS (1)
  1. BONIVA [Suspect]
     Indication: OSTEOPOROSIS
     Dosage: FREQUENCY: SINGLE, FORM: INJECTION
     Route: 042
     Dates: start: 20100301

REACTIONS (2)
  - HYPOCALCAEMIA [None]
  - TETANY [None]
